FAERS Safety Report 8536000-X (Version None)
Quarter: 2012Q3

REPORT INFORMATION
  Report Type: 
  Country: None (occurrence: None)
  Receive Date: 20120725
  Receipt Date: 20120718
  Transmission Date: 20120928
  Serious: Yes (Disabling)
  Sender: FDA-Public Use
  Company Number: US-SANOFI-AVENTIS-2012SA051753

PATIENT
  Age: 65 Year
  Sex: Female
  Weight: 64.5 kg

DRUGS (1)
  1. LASIX [Suspect]
     Indication: STENT PLACEMENT
     Dates: start: 20040101

REACTIONS (2)
  - EYE DISORDER [None]
  - BLINDNESS [None]
